FAERS Safety Report 24201000 (Version 1)
Quarter: 2024Q3

REPORT INFORMATION
  Report Type: Spontaneous
  Country: US (occurrence: US)
  Receive Date: 20240812
  Receipt Date: 20240812
  Transmission Date: 20241017
  Serious: Yes (Death)
  Sender: MYLAN
  Company Number: US-MYLANLABS-2024M1074228

PATIENT
  Age: 28 Year
  Sex: Male

DRUGS (11)
  1. DEXAMETHASONE [Suspect]
     Active Substance: DEXAMETHASONE
     Indication: B-cell type acute leukaemia
     Dosage: UNK; AS FOURTH LINE TREATMENT (AS A PART OF SMILE REGIMEN)
     Route: 065
  2. METHOTREXATE [Suspect]
     Active Substance: METHOTREXATE
     Indication: B-cell type acute leukaemia
     Dosage: UNK; AS FOURTH LINE TREATMENT (AS A PART OF SMILE REGIMEN)
     Route: 065
  3. ETOPOSIDE [Suspect]
     Active Substance: ETOPOSIDE
     Indication: B-cell type acute leukaemia
     Dosage: UNK; AS FOURTH LINE TREATMENT (AS A PART OF SMILE REGIMEN)
     Route: 065
  4. ETOPOSIDE [Suspect]
     Active Substance: ETOPOSIDE
     Dosage: UNK; AS FOURTH LINE TREATMENT (AS A PART OF CCE REGIMEN)
     Route: 065
  5. IFOSFAMIDE [Suspect]
     Active Substance: IFOSFAMIDE
     Indication: B-cell type acute leukaemia
     Dosage: UNK; AS FOURTH LINE TREATMENT (AS A PART OF SMILE REGIMEN)
     Route: 065
  6. ASPARAGINASE [Suspect]
     Active Substance: ASPARAGINASE
     Indication: B-cell type acute leukaemia
     Dosage: UNK; AS FOURTH LINE TREATMENT (AS A PART OF SMILE REGIMEN)
     Route: 065
  7. CLADRIBINE [Suspect]
     Active Substance: CLADRIBINE
     Indication: B-cell type acute leukaemia
     Dosage: UNK; AS FOURTH LINE TREATMENT (AS A PART OF CCE REGIMEN)
     Route: 065
  8. CYTARABINE [Suspect]
     Active Substance: CYTARABINE
     Indication: B-cell type acute leukaemia
     Dosage: UNK; AS FOURTH LINE TREATMENT (AS A PART OF CCE REGIMEN)
     Route: 065
  9. DASATINIB [Suspect]
     Active Substance: DASATINIB
     Indication: B-cell type acute leukaemia
     Dosage: UNK; AS FOURTH LINE TREATMENT
     Route: 065
  10. PONATINIB [Suspect]
     Active Substance: PONATINIB
     Indication: B-cell type acute leukaemia
     Dosage: UNK; AS FIFTH LINE TREATMENT
     Route: 065
  11. ASCIMINIB [Suspect]
     Active Substance: ASCIMINIB
     Indication: B-cell type acute leukaemia
     Dosage: UNK, AS FIFTH LINE TREATMENT
     Route: 065

REACTIONS (1)
  - Drug ineffective [Fatal]
